FAERS Safety Report 9196487 (Version 1)
Quarter: 2013Q1

REPORT INFORMATION
  Report Type: Spontaneous
  Country: US (occurrence: US)
  Receive Date: 20130328
  Receipt Date: 20130328
  Transmission Date: 20140127
  Serious: Yes (Other)
  Sender: FDA-Public Use
  Company Number: US-PFIZER INC-2013099321

PATIENT
  Age: 58 Year
  Sex: Female
  Weight: 96.6 kg

DRUGS (4)
  1. LIPITOR [Suspect]
     Indication: BLOOD CHOLESTEROL INCREASED
     Dosage: 20MG DAILY
  2. LIPITOR [Suspect]
     Dosage: 40MG DAILY
  3. ACCURETIC [Concomitant]
     Indication: HYPERTENSION
     Dosage: 20/25 MG DAILY
  4. CLONIDINE [Concomitant]
     Indication: HYPERTENSION
     Dosage: 0.2MG TWO TIMES A DAY

REACTIONS (1)
  - Diabetes mellitus [Not Recovered/Not Resolved]
